FAERS Safety Report 10076227 (Version 1)
Quarter: 2014Q2

REPORT INFORMATION
  Report Type: Spontaneous
  Country: US (occurrence: US)
  Receive Date: 20140414
  Receipt Date: 20140414
  Transmission Date: 20141212
  Serious: No
  Sender: FDA-Public Use
  Company Number: US-B.I. PHARMACEUTICALS,INC./RIDGEFIELD-2014-BI-14555BP

PATIENT
  Sex: Male
  Weight: 71.36 kg

DRUGS (1)
  1. TRADJENTA [Suspect]
     Indication: TYPE 2 DIABETES MELLITUS
     Dosage: 5 MG
     Route: 048
     Dates: start: 201310, end: 201402

REACTIONS (4)
  - Weight decreased [Not Recovered/Not Resolved]
  - Amylase increased [Not Recovered/Not Resolved]
  - Liver function test abnormal [Recovered/Resolved]
  - Lipase increased [Not Recovered/Not Resolved]
